FAERS Safety Report 9626866 (Version 1)
Quarter: 2013Q4

REPORT INFORMATION
  Report Type: Spontaneous
  Country: FR (occurrence: FR)
  Receive Date: 20131016
  Receipt Date: 20131016
  Transmission Date: 20140711
  Serious: Yes (Death)
  Sender: FDA-Public Use
  Company Number: FR-UCBSA-099915

PATIENT
  Age: 64 Year
  Sex: Male

DRUGS (12)
  1. VIMPAT [Suspect]
     Dates: start: 2013
  2. KEPPRA [Suspect]
     Dates: start: 20130602
  3. ARACYTINE [Suspect]
     Indication: LYMPHOMA
     Route: 042
     Dates: start: 20130627
  4. ARACYTINE [Suspect]
     Indication: LYMPHOMA
     Route: 037
     Dates: start: 20130627
  5. METHOTREXATE [Suspect]
     Indication: LYMPHOMA
     Route: 037
     Dates: start: 20130627
  6. METHOTREXATE [Suspect]
     Indication: LYMPHOMA
     Route: 042
     Dates: start: 20130705
  7. DEPO MEDROL [Suspect]
     Indication: LYMPHOMA
     Route: 037
     Dates: start: 20130627
  8. PRODILANTIN [Suspect]
     Dates: start: 2013
  9. RIVOTRIL [Suspect]
     Dates: start: 201305
  10. CALCIUM FOLINATE [Suspect]
     Route: 042
     Dates: start: 20130705
  11. CALCIUM FOLINATE [Suspect]
     Route: 048
     Dates: start: 20130706
  12. ACICLOVIR [Concomitant]

REACTIONS (4)
  - Aplasia [Fatal]
  - Bacteraemia [Fatal]
  - Melaena [Fatal]
  - Histiocytosis haematophagic [Fatal]
